FAERS Safety Report 13861463 (Version 1)
Quarter: 2017Q3

REPORT INFORMATION
  Report Type: Spontaneous
  Country: DE (occurrence: DE)
  Receive Date: 20170811
  Receipt Date: 20170811
  Transmission Date: 20171127
  Serious: Yes (Other)
  Sender: FDA-Public Use
  Company Number: PHHY2017DE116361

PATIENT
  Age: 74 Year
  Sex: Female
  Weight: 54 kg

DRUGS (7)
  1. CYCLOPHOSPHAMIDE. [Concomitant]
     Active Substance: CYCLOPHOSPHAMIDE
     Indication: PRODUCT USED FOR UNKNOWN INDICATION
     Dosage: UNK UNK, QW
     Route: 065
     Dates: start: 20150416, end: 20150511
  2. AMOXICLAV [Concomitant]
     Active Substance: AMOXICILLIN\CLAVULANIC ACID
     Indication: TOOTH EXTRACTION
     Dosage: UNK
     Route: 065
     Dates: start: 20161107, end: 20161112
  3. EPIRUBICIN [Concomitant]
     Active Substance: EPIRUBICIN
     Indication: PRODUCT USED FOR UNKNOWN INDICATION
     Dosage: UNK
     Route: 065
     Dates: start: 20150416, end: 20150511
  4. DOCETAXEL. [Concomitant]
     Active Substance: DOCETAXEL
     Indication: PRODUCT USED FOR UNKNOWN INDICATION
     Dosage: UNK UNK, QW
     Route: 065
     Dates: start: 201603
  5. EPIRUBICIN [Concomitant]
     Active Substance: EPIRUBICIN
     Dosage: UNK, QW
     Route: 065
     Dates: start: 20150511
  6. ZOMETA [Suspect]
     Active Substance: ZOLEDRONIC ACID
     Indication: PRODUCT USED FOR UNKNOWN INDICATION
     Dosage: UNK UNK, QMO
     Route: 065
     Dates: start: 20140312, end: 201609
  7. FASLODEX [Concomitant]
     Active Substance: FULVESTRANT
     Indication: PRODUCT USED FOR UNKNOWN INDICATION
     Dosage: UNK
     Route: 065
     Dates: start: 20140312

REACTIONS (8)
  - Metastases to bone [Unknown]
  - Disease progression [Unknown]
  - Blood calcium decreased [Unknown]
  - Weight decreased [Unknown]
  - Pulmonary infarction [Unknown]
  - Breast cancer metastatic [Unknown]
  - Pulmonary embolism [Unknown]
  - Blood potassium decreased [Unknown]

NARRATIVE: CASE EVENT DATE: 20140320
